FAERS Safety Report 20841242 (Version 1)
Quarter: 2022Q2

REPORT INFORMATION
  Report Type: Spontaneous
  Country: None (occurrence: US)
  Receive Date: 20220517
  Receipt Date: 20220517
  Transmission Date: 20220720
  Serious: Yes (Other)
  Sender: FDA-Public Use
  Company Number: US-Edgewell Personal Care, LLC-2128881

PATIENT
  Age: 11 Year
  Sex: Male

DRUGS (1)
  1. BANANA BOAT SPORT ULTRA SUNSCREEN BROAD SPECTRUM SPF 65 [Suspect]
     Active Substance: AVOBENZONE\HOMOSALATE\OCTISALATE\OCTOCRYLENE
     Indication: Prophylaxis against solar radiation
     Route: 061
     Dates: start: 20220430, end: 20220430

REACTIONS (6)
  - Vomiting [Recovered/Resolved]
  - Chest pain [Unknown]
  - Blister [Unknown]
  - Decreased appetite [Unknown]
  - Thermal burn [Unknown]
  - Skin discolouration [Unknown]

NARRATIVE: CASE EVENT DATE: 20220430
